FAERS Safety Report 6993632-8 (Version None)
Quarter: 2010Q3

REPORT INFORMATION
  Report Type: 
  Country: None (occurrence: None)
  Receive Date: 20100917
  Receipt Date: 20091120
  Transmission Date: 20110219
  Serious: Yes (Other)
  Sender: FDA-Public Use
  Company Number: US-ASTRAZENECA-2007UW09639

PATIENT
  Age: 489 Month
  Sex: Male
  Weight: 116.6 kg

DRUGS (17)
  1. SEROQUEL [Suspect]
     Indication: DEPRESSION
     Route: 048
     Dates: start: 20040901, end: 20050101
  2. SEROQUEL [Suspect]
     Dosage: 25 TO 50 MG
     Route: 048
     Dates: start: 20050118
  3. SEROQUEL [Suspect]
     Route: 048
     Dates: start: 20080101, end: 20080821
  4. RISPERDAL [Concomitant]
     Dates: end: 20050101
  5. ZYPREXA [Concomitant]
     Route: 048
     Dates: start: 20040917
  6. HYZAAR [Concomitant]
     Indication: BLOOD PRESSURE
     Dosage: 100/25 EVERYDAY
     Route: 048
     Dates: start: 20041005
  7. LEXAPRO [Concomitant]
     Indication: DEPRESSION
     Dosage: 10 TO 20 MG
     Route: 048
     Dates: start: 20041214
  8. PEG-INTRON [Concomitant]
     Route: 048
  9. HYDROCODONE [Concomitant]
     Dosage: AS REQUIRED
     Route: 048
     Dates: start: 20031201
  10. CLONIDINE [Concomitant]
     Indication: BLOOD PRESSURE
     Dosage: 0.1 TO 2.5 MG, FLUCTUATING
     Route: 048
     Dates: start: 20030307
  11. ASPIRIN [Concomitant]
     Dosage: 81 TO 325 MG
     Route: 048
     Dates: start: 20060930
  12. RIBAVIRIN [Concomitant]
     Indication: HEPATITIS C
     Dosage: 600 MG IN A.M AND 800 MG IN P.M
     Route: 048
     Dates: start: 20041215
  13. METOPROLOL [Concomitant]
     Dosage: 25 TO 50 MG
     Route: 048
     Dates: start: 20030703
  14. PAXIL CR [Concomitant]
     Route: 048
     Dates: start: 20050226
  15. FERROUS SULFATE [Concomitant]
     Route: 048
     Dates: start: 20040803
  16. LISINOPRIL [Concomitant]
     Indication: HYPERTENSION
     Route: 048
     Dates: start: 20090909
  17. ASPIRIN [Concomitant]
     Indication: CORONARY ARTERY DISEASE
     Route: 048
     Dates: start: 20090909

REACTIONS (7)
  - DIABETES MELLITUS [None]
  - DIABETES MELLITUS INADEQUATE CONTROL [None]
  - GLUCOSE TOLERANCE IMPAIRED [None]
  - PANCREATITIS ACUTE [None]
  - SUICIDAL IDEATION [None]
  - TYPE 2 DIABETES MELLITUS [None]
  - WEIGHT INCREASED [None]
